FAERS Safety Report 20826694 (Version 1)
Quarter: 2022Q2

REPORT INFORMATION
  Report Type: Spontaneous
  Country: GB (occurrence: None)
  Receive Date: 20220513
  Receipt Date: 20220513
  Transmission Date: 20220720
  Serious: Yes (Disabling)
  Sender: FDA-Public Use
  Company Number: 2022A178585

PATIENT
  Age: 74 Year
  Sex: Female
  Weight: 59 kg

DRUGS (10)
  1. SODIUM ZIRCONIUM CYCLOSILICATE [Suspect]
     Active Substance: SODIUM ZIRCONIUM CYCLOSILICATE
     Route: 048
     Dates: start: 20220503
  2. AMOXICILLIN [Concomitant]
     Active Substance: AMOXICILLIN
     Dosage: TAKE ONE 3 TIMES/DAY
     Route: 065
     Dates: start: 20220210, end: 20220215
  3. BISOPROLOL [Concomitant]
     Active Substance: BISOPROLOL
     Dosage: TAKE ONE TWICE A DAY AS DIRECTED BY THE HOSPITAL
     Route: 065
     Dates: start: 20210720
  4. CETIRIZINE [Concomitant]
     Active Substance: CETIRIZINE HYDROCHLORIDE
     Dosage: TAKE ONE DAILY FOR RASH
     Route: 065
     Dates: start: 20220428
  5. COCODAMOL [Concomitant]
     Active Substance: ACETAMINOPHEN\CODEINE PHOSPHATE
     Dosage: TAKE 1 OR 2 4 TIMES/DAY
     Route: 065
     Dates: start: 20140704
  6. LEVOTHYROXINE [Concomitant]
     Active Substance: LEVOTHYROXINE
     Dosage: TAKE ONE EACH MORNING
     Route: 065
     Dates: start: 20220121
  7. LOPERAMIDE [Concomitant]
     Active Substance: LOPERAMIDE
     Dosage: TAKE UP TO 6 DAILY
     Route: 065
     Dates: start: 20201130
  8. PRAVASTATIN [Concomitant]
     Active Substance: PRAVASTATIN
     Dosage: TAKE ONE AT NIGHT
     Route: 065
     Dates: start: 20150713
  9. SACUBITRIL [Concomitant]
     Active Substance: SACUBITRIL
     Dosage: TAKE ONE TWICE DAILY
     Route: 065
     Dates: start: 20211011
  10. SPIRONOLACTONE [Concomitant]
     Active Substance: SPIRONOLACTONE
     Dosage: TAKE ONE ON ALTERNATE DAYS
     Route: 065
     Dates: start: 20210730

REACTIONS (9)
  - Diarrhoea [Unknown]
  - Dizziness [Recovered/Resolved]
  - Fatigue [Unknown]
  - Rash pruritic [Recovering/Resolving]
  - Nausea [Recovering/Resolving]
  - Decreased appetite [Recovering/Resolving]
  - Dyspnoea [Recovered/Resolved]
  - Tongue discolouration [Recovering/Resolving]
  - Muscular weakness [Recovered/Resolved]

NARRATIVE: CASE EVENT DATE: 20220503
